FAERS Safety Report 8441009-0 (Version None)
Quarter: 2012Q2

REPORT INFORMATION
  Report Type: 
  Country: None (occurrence: None)
  Receive Date: 20120615
  Receipt Date: 20110703
  Transmission Date: 20120825
  Serious: No
  Sender: FDA-Public Use
  Company Number: US-NOVEN-11US002741

PATIENT
  Sex: Male
  Weight: 21.769 kg

DRUGS (2)
  1. DAYTRANA [Suspect]
     Dosage: 20 MG, QD
     Route: 062
     Dates: start: 20090101
  2. INTUNIV [Concomitant]
     Indication: ATTENTION DEFICIT/HYPERACTIVITY DISORDER
     Dosage: 2 MG, MORNING
     Route: 048
     Dates: start: 20110101

REACTIONS (3)
  - URINARY INCONTINENCE [None]
  - OFF LABEL USE [None]
  - POLYDIPSIA [None]
